FAERS Safety Report 9114006 (Version 1)
Quarter: 2013Q1

REPORT INFORMATION
  Report Type: Spontaneous
  Country: US (occurrence: US)
  Receive Date: 20130129
  Receipt Date: 20130129
  Transmission Date: 20140127
  Serious: No
  Sender: FDA-Public Use
  Company Number: US-PFIZER INC-2013034526

PATIENT
  Age: 69 Year
  Sex: Male

DRUGS (1)
  1. INLYTA [Suspect]
     Dosage: UNK

REACTIONS (4)
  - Confusional state [Recovering/Resolving]
  - Disturbance in attention [Recovering/Resolving]
  - Logorrhoea [Recovering/Resolving]
  - Fatigue [Recovering/Resolving]
